FAERS Safety Report 12285404 (Version 1)
Quarter: 2016Q2

REPORT INFORMATION
  Report Type: Spontaneous
  Country: US (occurrence: None)
  Receive Date: 20160419
  Receipt Date: 20160419
  Transmission Date: 20160815
  Serious: Yes (Life-Threatening)
  Sender: FDA-Public Use
  Company Number: None

PATIENT
  Age: 84 Year
  Sex: Female
  Weight: 75.3 kg

DRUGS (12)
  1. NITROGLYCERIN. [Concomitant]
     Active Substance: NITROGLYCERIN
  2. PROPAFENONE HYDROCHLORIDE HCL, 225 MG [Suspect]
     Active Substance: PROPAFENONE HYDROCHLORIDE
     Indication: ATRIAL FIBRILLATION
     Route: 048
     Dates: start: 20160324, end: 20160418
  3. ELIQUIS [Concomitant]
     Active Substance: APIXABAN
  4. ZETIA [Concomitant]
     Active Substance: EZETIMIBE
  5. ALLOPURINOL. [Concomitant]
     Active Substance: ALLOPURINOL
  6. OCULAR LUBRICANT [Concomitant]
  7. PROPAFENONE HYDROCHLORIDE HCL, 225 MG [Suspect]
     Active Substance: PROPAFENONE HYDROCHLORIDE
     Indication: DISEASE RECURRENCE
     Route: 048
     Dates: start: 20160324, end: 20160418
  8. LASIX [Concomitant]
     Active Substance: FUROSEMIDE
  9. MULTI-VITAMIN [Concomitant]
     Active Substance: .ALPHA.-TOCOPHEROL ACETATE, DL-\ASCORBIC ACID\CYANOCOBALAMIN\FLUORIDE ION\FOLIC ACID\NIACIN\PYRIDOXINE\RIBOFLAVIN\THIAMINE\VITAMIN A\VITAMIN D
  10. LEVOTYROXINE [Concomitant]
  11. AMLODIPINE [Concomitant]
     Active Substance: AMLODIPINE BESYLATE
  12. VITAMIN D3 [Concomitant]
     Active Substance: CHOLECALCIFEROL

REACTIONS (15)
  - Dizziness [None]
  - Nasal obstruction [None]
  - Heart rate irregular [None]
  - Malaise [None]
  - Dry throat [None]
  - Chest discomfort [None]
  - Rhinorrhoea [None]
  - Chest pain [None]
  - Dyspnoea [None]
  - Constipation [None]
  - Oropharyngeal pain [None]
  - Nasal dryness [None]
  - Heart rate decreased [None]
  - Throat tightness [None]
  - Diarrhoea [None]

NARRATIVE: CASE EVENT DATE: 20160324
